FAERS Safety Report 5726466-2 (Version None)
Quarter: 2008Q2

REPORT INFORMATION
  Report Type: 
  Country: None (occurrence: None)
  Receive Date: 20080502
  Receipt Date: 20080430
  Transmission Date: 20081010
  Serious: Yes (Disabling)
  Sender: FDA-Public Use
  Company Number: B0518857A

PATIENT
  Sex: Male

DRUGS (4)
  1. WELLBUTRIN [Suspect]
     Indication: DEPRESSION
     Route: 048
     Dates: start: 20080101
  2. LITHIUM CARBONATE [Concomitant]
     Route: 048
  3. TRAZODONE HCL [Concomitant]
     Route: 048
  4. IMOVANE [Concomitant]
     Route: 048

REACTIONS (3)
  - DRUG LEVEL INCREASED [None]
  - IMPAIRED DRIVING ABILITY [None]
  - PARKINSONISM [None]
